FAERS Safety Report 12469014 (Version 1)
Quarter: 2016Q2

REPORT INFORMATION
  Report Type: Spontaneous
  Country: FR (occurrence: FR)
  Receive Date: 20160615
  Receipt Date: 20160615
  Transmission Date: 20160815
  Serious: Yes (Hospitalization)
  Sender: FDA-Public Use
  Company Number: FR-PFIZER INC-2016294381

PATIENT
  Age: 45 Year
  Sex: Male
  Weight: 75 kg

DRUGS (2)
  1. METHADONE AP HP [Suspect]
     Active Substance: METHADONE HYDROCHLORIDE
     Dosage: 120 MG, SINGLE
     Route: 048
     Dates: start: 20160510, end: 20160510
  2. XANAX [Suspect]
     Active Substance: ALPRAZOLAM
     Dosage: 3 DF, SINGLE
     Route: 048
     Dates: start: 20160510, end: 20160510

REACTIONS (5)
  - Coma [Recovered/Resolved]
  - Respiratory acidosis [Recovered/Resolved]
  - Poisoning deliberate [Recovered/Resolved]
  - Bradypnoea [Recovered/Resolved]
  - Intentional overdose [Unknown]

NARRATIVE: CASE EVENT DATE: 20160510
